FAERS Safety Report 9929088 (Version 1)
Quarter: 2014Q1

REPORT INFORMATION
  Report Type: Report from Study
  Country: JP (occurrence: JP)
  Receive Date: 20140227
  Receipt Date: 20140227
  Transmission Date: 20141002
  Serious: Yes (Hospitalization)
  Sender: FDA-Public Use
  Company Number: JP-BRISTOL-MYERS SQUIBB COMPANY-20332995

PATIENT
  Age: 58 Year
  Sex: Female
  Weight: 55.9 kg

DRUGS (12)
  1. ORENCIA FOR INJ 250 MG/VIAL [Suspect]
     Indication: RHEUMATOID ARTHRITIS
     Dosage: OVER 30MINS
     Route: 041
     Dates: start: 20120202
  2. METHOTREXATE [Suspect]
     Indication: RHEUMATOID ARTHRITIS
     Dosage: 17FEB2012 TO 13SEP2012 (6MG)?14SEP2012 TO ONG (10MG)
     Dates: start: 20120217
  3. TACROLIMUS [Concomitant]
     Indication: RHEUMATOID ARTHRITIS
  4. PREDONINE [Concomitant]
     Indication: RHEUMATOID ARTHRITIS
     Dosage: ALSO ON 25-SEP-2013
     Dates: start: 20130517
  5. INFREE S [Concomitant]
     Indication: RHEUMATOID ARTHRITIS
  6. SOLETON [Concomitant]
     Indication: RHEUMATOID ARTHRITIS
  7. METHYCOBAL [Concomitant]
     Indication: RHEUMATOID ARTHRITIS
     Dates: start: 2006
  8. FERROMIA [Concomitant]
     Dates: start: 2006
  9. PURSENNID [Concomitant]
     Dates: start: 20100511
  10. FOLIAMIN [Concomitant]
     Indication: PROPHYLAXIS
     Dates: start: 20120302
  11. BONOTEO [Concomitant]
     Dates: start: 20111227
  12. ZANTAC [Concomitant]
     Indication: PROPHYLAXIS
     Dates: start: 2006

REACTIONS (2)
  - Rheumatoid vasculitis [Not Recovered/Not Resolved]
  - Tibia fracture [Recovered/Resolved]
